FAERS Safety Report 4674710-5 (Version None)
Quarter: 2005Q2

REPORT INFORMATION
  Report Type: 
  Country: None (occurrence: None)
  Receive Date: 20050526
  Receipt Date: 20050517
  Transmission Date: 20051028
  Serious: Yes (Hospitalization)
  Sender: FDA-Public Use
  Company Number: PHHO2005JP07799

PATIENT
  Age: 52 Year
  Sex: Male

DRUGS (2)
  1. NATEGLINIDE [Suspect]
     Indication: DIABETES MELLITUS NON-INSULIN-DEPENDENT
     Dosage: 270 MG / DAY
     Route: 048
     Dates: start: 20050212, end: 20050512
  2. METFORMIN HCL [Suspect]
     Indication: DIABETES MELLITUS NON-INSULIN-DEPENDENT
     Dosage: 500 MG / DAY
     Route: 048
     Dates: start: 20050115, end: 20050512

REACTIONS (2)
  - DIVERTICULITIS [None]
  - MELAENA [None]
